FAERS Safety Report 5301917-6 (Version None)
Quarter: 2007Q2

REPORT INFORMATION
  Report Type: 
  Country: None (occurrence: None)
  Receive Date: 20070419
  Receipt Date: 20070410
  Transmission Date: 20071010
  Serious: Yes (Hospitalization)
  Sender: FDA-Public Use
  Company Number: NL-AVENTIS-200621420GDDC

PATIENT
  Age: 52 Year
  Sex: Female

DRUGS (18)
  1. ARAVA [Suspect]
     Route: 048
     Dates: end: 20061101
  2. INDOCID                            /00003801/ [Concomitant]
  3. PREDNISOLONE [Concomitant]
  4. OMEPRAZOLE [Concomitant]
  5. OMEPRAZOLE [Concomitant]
  6. CALCI-CHEW [Concomitant]
     Dosage: DOSE: 500MG/400EH
  7. FOSAMAX [Concomitant]
  8. METOPROLOL RETARD [Concomitant]
  9. AMLODIPINE [Concomitant]
  10. LOSARTAN POSTASSIUM [Concomitant]
  11. TRIAMTERENE AND HYDROCHLOROTHIAZIDE [Concomitant]
     Dosage: DOSE: 50/25 MG 1 TABLET
  12. EFEXOR XR                          /01233801/ [Concomitant]
  13. ACYCLOVIR [Concomitant]
  14. TRIMETHOPRIM [Concomitant]
     Indication: PROPHYLAXIS
  15. TEMAZEPAM [Concomitant]
  16. PARACETAMOL [Concomitant]
  17. MS CONTIN [Concomitant]
     Dosage: DOSE: 10 MG MAXIMUM TID
  18. PULMICORT [Concomitant]
     Dosage: DOSE: UNK

REACTIONS (4)
  - BLOOD POTASSIUM DECREASED [None]
  - NAUSEA [None]
  - RENAL FAILURE [None]
  - VOMITING [None]
